FAERS Safety Report 8510749 (Version 5)
Quarter: 2013Q1

REPORT INFORMATION
  Report Type: Spontaneous
  Country: US (occurrence: US)
  Receive Date: 20120413
  Receipt Date: 20130314
  Transmission Date: 20140127
  Serious: Yes (Other)
  Sender: FDA-Public Use
  Company Number: US-PFIZER INC-2012088235

PATIENT
  Age: 83 Year
  Sex: Female
  Weight: 92 kg

DRUGS (3)
  1. GLUCOTROL [Suspect]
     Dosage: UNK
  2. ACCUPRIL [Suspect]
     Dosage: UNK
  3. CALAN SR [Suspect]
     Dosage: UNK

REACTIONS (6)
  - Furuncle [Unknown]
  - Pain [Unknown]
  - Pain in extremity [Unknown]
  - Feeling abnormal [Unknown]
  - Headache [Unknown]
  - Drug dispensing error [Unknown]
